FAERS Safety Report 19330745 (Version 2)
Quarter: 2021Q4

REPORT INFORMATION
  Report Type: Spontaneous
  Country: BR (occurrence: BR)
  Receive Date: 20210528
  Receipt Date: 20211119
  Transmission Date: 20220303
  Serious: Yes (Other)
  Sender: FDA-Public Use
  Company Number: BR-009507513-2105BRA005055

PATIENT
  Age: 81 Year
  Sex: Male
  Weight: 84.9 kg

DRUGS (2)
  1. CANCIDAS [Suspect]
     Active Substance: CASPOFUNGIN ACETATE
     Indication: Infection
     Dosage: 50 MILLIGRAM, QD
     Route: 042
     Dates: start: 20210410, end: 20210423
  2. SODIUM PICOSULFATE [Concomitant]
     Active Substance: SODIUM PICOSULFATE
     Dosage: 20 GTT DROPS, HS
     Dates: start: 20210410, end: 20210414

REACTIONS (6)
  - Chronic lymphocytic leukaemia [Unknown]
  - Colitis ulcerative [Unknown]
  - Type 2 diabetes mellitus [Unknown]
  - Benign prostatic hyperplasia [Unknown]
  - Hypertension [Unknown]
  - Diarrhoea [Recovered/Resolved]

NARRATIVE: CASE EVENT DATE: 20210412
